FAERS Safety Report 5971042-X (Version None)
Quarter: 2008Q4

REPORT INFORMATION
  Report Type: 
  Country: None (occurrence: None)
  Receive Date: 20081128
  Receipt Date: 20081118
  Transmission Date: 20090506
  Serious: Yes (Hospitalization, Other)
  Sender: FDA-Public Use
  Company Number: PHHY2008BR28822

PATIENT
  Age: 10 Year
  Sex: Male
  Weight: 33.5 kg

DRUGS (7)
  1. TEGRETOL [Suspect]
     Dosage: 2% SOLUTION
     Route: 048
  2. TEGRETOL [Suspect]
     Dosage: 200 MG, TID
     Route: 048
  3. TEGRETOL [Suspect]
     Dosage: EACH TABLET 200 MG, 2 DF, TID
  4. DIPROSALIC [Concomitant]
  5. AMOXICILLIN [Concomitant]
     Dosage: UNK
  6. RIVOTRIL [Concomitant]
  7. RISPERIDONE [Concomitant]

REACTIONS (18)
  - ABNORMAL BEHAVIOUR [None]
  - BRONCHITIS [None]
  - CONDITION AGGRAVATED [None]
  - CONVERSION DISORDER [None]
  - CONVULSION [None]
  - DRY SKIN [None]
  - DYSPNOEA [None]
  - FALL [None]
  - MUSCLE RIGIDITY [None]
  - NASOPHARYNGITIS [None]
  - POSTURE ABNORMAL [None]
  - SCREAMING [None]
  - SKIN DISCOLOURATION [None]
  - SKIN EXFOLIATION [None]
  - SOMNOLENCE [None]
  - TONGUE DISORDER [None]
  - TONSILLITIS [None]
  - WEIGHT DECREASED [None]
